FAERS Safety Report 8037399-3 (Version None)
Quarter: 2012Q1

REPORT INFORMATION
  Report Type: 
  Country: None (occurrence: None)
  Receive Date: 20120111
  Receipt Date: 20120103
  Transmission Date: 20120608
  Serious: Yes (Hospitalization)
  Sender: FDA-Public Use
  Company Number: US-BAYER-2011-047583

PATIENT
  Age: 23 Year
  Sex: Female
  Weight: 104.31 kg

DRUGS (7)
  1. DROSPIRENONE AND ETHINYL ESTRADIOL [Suspect]
     Indication: HORMONE LEVEL ABNORMAL
  2. DROSPIRENONE AND ETHINYL ESTRADIOL [Suspect]
     Indication: ACNE
     Dosage: UNK
     Route: 048
     Dates: start: 20090901, end: 20100201
  3. LORTAB [Concomitant]
     Indication: PAIN
     Route: 048
  4. DROSPIRENONE AND ETHINYL ESTRADIOL [Suspect]
     Indication: MENSTRUAL CYCLE MANAGEMENT
  5. VIBRAMYCIN [Concomitant]
     Indication: URINARY TRACT INFECTION
     Dosage: UNK
     Route: 048
     Dates: start: 20100323
  6. TRI-SPRINTEC [Concomitant]
     Indication: POLYCYSTIC OVARIES
     Dosage: DAILY
     Route: 048
  7. CIPROFLOXACIN [Concomitant]
     Indication: URINARY TRACT INFECTION
     Dosage: UNK
     Route: 048
     Dates: start: 20100425

REACTIONS (4)
  - GALLBLADDER CHOLESTEROLOSIS [None]
  - BILIARY DYSKINESIA [None]
  - CHOLECYSTITIS [None]
  - ABDOMINAL PAIN [None]
